FAERS Safety Report 16999972 (Version 2)
Quarter: 2020Q1

REPORT INFORMATION
  Report Type: Spontaneous
  Country: US (occurrence: US)
  Receive Date: 20191106
  Receipt Date: 20200217
  Transmission Date: 20200409
  Serious: Yes (Death, Other)
  Sender: FDA-Public Use
  Company Number: US-PFIZER INC-2019474864

PATIENT
  Age: 81 Year
  Sex: Male

DRUGS (2)
  1. NIVESTYM [Suspect]
     Active Substance: FILGRASTIM-AAFI
     Indication: ANAEMIA
  2. NIVESTYM [Suspect]
     Active Substance: FILGRASTIM-AAFI
     Indication: LUNG NEOPLASM MALIGNANT
     Dosage: 4000 IU, UNK

REACTIONS (1)
  - Death [Fatal]
